FAERS Safety Report 6037065-X (Version None)
Quarter: 2009Q1

REPORT INFORMATION
  Report Type: 
  Country: None (occurrence: None)
  Receive Date: 20090114
  Receipt Date: 20090112
  Transmission Date: 20090719
  Serious: Yes (Other)
  Sender: FDA-Public Use
  Company Number: GB-JNJFOC-20081205221

PATIENT
  Sex: Male
  Weight: 95.71 kg

DRUGS (6)
  1. RISPERDAL CONSTA [Suspect]
     Indication: SCHIZOPHRENIA
     Route: 030
  2. FLUTICASONE PROPIONATE [Concomitant]
     Route: 055
  3. BECLOMETHASONE DIPROPIONATE [Concomitant]
     Route: 055
  4. VENTOLIN [Concomitant]
     Route: 055
  5. OLMESARTAN MEDOXOMIL [Concomitant]
  6. PAROXETINE HCL [Concomitant]

REACTIONS (2)
  - ABNORMAL WEIGHT GAIN [None]
  - DIABETES MELLITUS [None]
